FAERS Safety Report 17926219 (Version 2)
Quarter: 2020Q3

REPORT INFORMATION
  Report Type: Spontaneous
  Country: US (occurrence: US)
  Receive Date: 20200623
  Receipt Date: 20200910
  Transmission Date: 20201103
  Serious: Yes (Life-Threatening, Hospitalization, Other)
  Sender: FDA-Public Use
  Company Number: US-DRREDDYS-USA/USA/20/0124315

PATIENT
  Age: 40 Year
  Sex: Male

DRUGS (1)
  1. TESTOSTERONE INJECTABLE SUSPENSION [Suspect]
     Active Substance: TESTOSTERONE
     Indication: PRODUCT USED FOR UNKNOWN INDICATION
     Route: 065

REACTIONS (11)
  - Aortic valve incompetence [Recovered/Resolved]
  - Mitral valve incompetence [Recovered/Resolved]
  - Cardiac valve vegetation [Recovered/Resolved]
  - Spinal cord compression [Recovered/Resolved]
  - Sepsis [Recovered/Resolved]
  - Spinal cord abscess [Recovered/Resolved]
  - Self-medication [Unknown]
  - Aortic aneurysm [Recovered/Resolved]
  - Intervertebral discitis [Recovered/Resolved]
  - Endocarditis [Recovered/Resolved]
  - Streptococcal infection [Recovered/Resolved]
